FAERS Safety Report 5318774-4 (Version None)
Quarter: 2007Q2

REPORT INFORMATION
  Report Type: 
  Country: None (occurrence: None)
  Receive Date: 20070501
  Receipt Date: 20070421
  Transmission Date: 20071010
  Serious: Yes (Hospitalization)
  Sender: FDA-Public Use
  Company Number: TCI2007A02075

PATIENT
  Age: 78 Year
  Sex: Male

DRUGS (3)
  1. ACTOS [Suspect]
     Indication: DIABETES MELLITUS NON-INSULIN-DEPENDENT
     Dosage: 15 MG (15 MG, 1 IN 1 D) PER ORAL
     Route: 048
     Dates: start: 20060904, end: 20070101
  2. BLOPRESS (CANDESARTAN CILEXETIL) [Suspect]
     Dosage: 8 MG (8 MG, 1 IN 1 D) PER ORAL
     Route: 048
     Dates: start: 20001027, end: 20070101
  3. GLYBURIDE [Suspect]
     Dosage: 10 MG (50MG, 2 IN 1 D)
     Route: 048
     Dates: start: 20001027, end: 20070101

REACTIONS (6)
  - APHASIA [None]
  - CEREBRAL INFARCTION [None]
  - DYSSTASIA [None]
  - HEMIPLEGIA [None]
  - PNEUMONIA ASPIRATION [None]
  - SOMNOLENCE [None]
